FAERS Safety Report 18730263 (Version 4)
Quarter: 2021Q1

REPORT INFORMATION
  Report Type: Spontaneous
  Country: US (occurrence: US)
  Receive Date: 20210112
  Receipt Date: 20210329
  Transmission Date: 20210419
  Serious: Yes (Other)
  Sender: FDA-Public Use
  Company Number: US-NOVOPROD-778871

PATIENT
  Age: 35 Year
  Sex: Male

DRUGS (6)
  1. NOVOLIN R [Suspect]
     Active Substance: INSULIN HUMAN
     Indication: TYPE 1 DIABETES MELLITUS
     Dosage: UNK
     Route: 058
     Dates: start: 20190101
  2. NOVOLIN R [Suspect]
     Active Substance: INSULIN HUMAN
     Dosage: (DOSE INCREASED)
     Route: 058
     Dates: end: 20210220
  3. NOVOLIN R [Suspect]
     Active Substance: INSULIN HUMAN
     Dosage: UNK
     Route: 058
     Dates: start: 20201224
  4. NOVOLIN R [Suspect]
     Active Substance: INSULIN HUMAN
     Dosage: UNK
     Route: 058
     Dates: start: 20201224
  5. NOVOLIN R [Suspect]
     Active Substance: INSULIN HUMAN
     Dosage: 11.8 ML
     Route: 058
     Dates: start: 20201224
  6. NOVOLIN R [Suspect]
     Active Substance: INSULIN HUMAN
     Dosage: UNK
     Route: 058
     Dates: start: 20201224

REACTIONS (5)
  - Product temperature excursion issue [Unknown]
  - Product quality issue [Unknown]
  - Drug ineffective [Unknown]
  - Drug intolerance [Unknown]
  - Diabetic ketoacidosis [Recovered/Resolved]

NARRATIVE: CASE EVENT DATE: 20201225
